FAERS Safety Report 21825625 (Version 5)
Quarter: 2023Q1

REPORT INFORMATION
  Report Type: Report from Study
  Country: BE (occurrence: BE)
  Receive Date: 20230105
  Receipt Date: 20230120
  Transmission Date: 20230418
  Serious: Yes (Hospitalization)
  Sender: FDA-Public Use
  Company Number: BE-ABBVIE-4256293

PATIENT
  Sex: Female

DRUGS (9)
  1. CARBIDOPA\LEVODOPA [Suspect]
     Active Substance: CARBIDOPA\LEVODOPA
     Indication: Parkinson^s disease
     Dosage: MD 4.5 ML; CD 1.6 ML/HR DURING 16 HOURS; ED 1.2 ML
     Route: 050
     Dates: start: 20221223, end: 20221227
  2. CARBIDOPA\LEVODOPA [Suspect]
     Active Substance: CARBIDOPA\LEVODOPA
     Dosage: MD 1.5 ML; CD 1.6 ML/HR DURING 16 HOURS; ED 1.2 ML
     Route: 050
     Dates: start: 20221227, end: 20230112
  3. CARBIDOPA\LEVODOPA [Suspect]
     Active Substance: CARBIDOPA\LEVODOPA
     Route: 050
     Dates: start: 20090330
  4. METOPROLOL [Concomitant]
     Active Substance: METOPROLOL
     Indication: Product used for unknown indication
     Dosage: 1/4
  5. METOPROLOL [Concomitant]
     Active Substance: METOPROLOL
     Indication: Product used for unknown indication
     Dosage: 1/4
  6. Mirapexin 0.7 mg [Concomitant]
     Indication: Product used for unknown indication
     Dosage: 1 UNKNOWN. 3 TIMES
  7. Stalevo 100 mg [Concomitant]
     Indication: Product used for unknown indication
     Dosage: TIME INTERVAL: 0.33333333 DAYS: THREE TIMES
  8. Temesta [Concomitant]
     Indication: Product used for unknown indication
     Dosage: IN EVENING
  9. AZILECT [Concomitant]
     Active Substance: RASAGILINE MESYLATE
     Indication: Product used for unknown indication
     Dosage: ONCE

REACTIONS (7)
  - General physical health deterioration [Not Recovered/Not Resolved]
  - Device dislocation [Recovering/Resolving]
  - Unintentional medical device removal [Recovering/Resolving]
  - Off label use [Not Recovered/Not Resolved]
  - Cachexia [Unknown]
  - Infection [Unknown]
  - Cognitive disorder [Unknown]

NARRATIVE: CASE EVENT DATE: 20221201
